FAERS Safety Report 4981142-9 (Version None)
Quarter: 2006Q2

REPORT INFORMATION
  Report Type: 
  Country: None (occurrence: None)
  Receive Date: 20060418
  Receipt Date: 20060405
  Transmission Date: 20061013
  Serious: Yes (Other)
  Sender: FDA-Public Use
  Company Number: HQWYE644105APR06

PATIENT
  Age: 30 Year
  Sex: Male

DRUGS (5)
  1. ALAVERT [Suspect]
     Dosage: ORAL
     Route: 048
     Dates: end: 20060301
  2. DEPAKOTE [Suspect]
     Indication: CONVULSION
  3. KEPPRA [Suspect]
     Indication: CONVULSION
  4. REBIF [Suspect]
     Indication: MULTIPLE SCLEROSIS
     Dosage: 22 MCG, 3 IN ONE WEEK, SUBCUTANEOUS
     Route: 058
     Dates: start: 20060224
  5. ZONEGRAN [Suspect]
     Indication: CONVULSION

REACTIONS (3)
  - CONTRAINDICATION TO MEDICAL TREATMENT [None]
  - CONVULSION [None]
  - DRUG INTERACTION [None]
